FAERS Safety Report 4527540-9 (Version None)
Quarter: 2004Q4

REPORT INFORMATION
  Report Type: 
  Country: None (occurrence: None)
  Receive Date: 20041130
  Receipt Date: 20040927
  Transmission Date: 20050328
  Serious: No
  Sender: FDA-Public Use
  Company Number: WAES 0409USA02214

PATIENT
  Age: 70 Year
  Sex: Female

DRUGS (5)
  1. ZETIA [Suspect]
     Indication: BLOOD CHOLESTEROL INCREASED
     Dosage: 10 MG/DAILY/PO
     Route: 048
     Dates: start: 20040401, end: 20040920
  2. LEVOTHYROXINE SODIUM [Concomitant]
  3. MECLIZINE [Concomitant]
  4. PAMIDRONATE DISODIUM [Concomitant]
  5. PROPRANOLOL HYDROCHLORIDE [Concomitant]

REACTIONS (2)
  - DIZZINESS [None]
  - VERTIGO [None]
